FAERS Safety Report 13880624 (Version 6)
Quarter: 2019Q1

REPORT INFORMATION
  Report Type: Spontaneous
  Country: ES (occurrence: ES)
  Receive Date: 20170818
  Receipt Date: 20190225
  Transmission Date: 20190417
  Serious: Yes (Hospitalization, Other)
  Sender: FDA-Public Use
  Company Number: ES-ACCORD-057217

PATIENT
  Sex: Female
  Weight: 1.52 kg

DRUGS (3)
  1. FUROSEMIDE. [Suspect]
     Active Substance: FUROSEMIDE
     Indication: HYPERPARATHYROIDISM
     Dosage: 20 MG/8 HR- MOTHER^S DOSE
     Route: 064
  2. CINACALCET/CINACALCET HYDROCHLORIDE [Suspect]
     Active Substance: CINACALCET\CINACALCET HYDROCHLORIDE
     Indication: HYPERCALCAEMIA
     Dosage: 30 MG TWICE PER DAY
     Route: 064
  3. CALCITONIN [Suspect]
     Active Substance: CALCITONIN
     Indication: HYPERCALCAEMIA
     Dosage: 100 IU/6 H
     Route: 064

REACTIONS (3)
  - Neonatal hypocalcaemia [Recovered/Resolved]
  - Neonatal cholestasis [Recovered/Resolved]
  - Foetal exposure during pregnancy [Unknown]
